FAERS Safety Report 7907673-7 (Version None)
Quarter: 2011Q4

REPORT INFORMATION
  Report Type: 
  Country: None (occurrence: None)
  Receive Date: 20111110
  Receipt Date: 20111028
  Transmission Date: 20120403
  Serious: Yes (Other)
  Sender: FDA-Public Use
  Company Number: GB-TEVA-306913ISR

PATIENT
  Age: 44 Year
  Sex: Female
  Weight: 52.1 kg

DRUGS (5)
  1. LORATADINE [Concomitant]
  2. CITALOPRAM HYDROBROMIDE [Concomitant]
  3. MIRENA [Suspect]
  4. OXYBUTYNIN [Concomitant]
  5. VALPROIC ACID [Suspect]

REACTIONS (2)
  - PREGNANCY WITH CONTRACEPTIVE DEVICE [None]
  - ABORTION SPONTANEOUS [None]
